FAERS Safety Report 8301711 (Version 2)
Quarter: 2015Q1

REPORT INFORMATION
  Report Type: Spontaneous
  Country: GR (occurrence: GR)
  Receive Date: 20111220
  Receipt Date: 20150206
  Transmission Date: 20150721
  Serious: Yes (Congenital Anomaly)
  Sender: FDA-Public Use
  Company Number: GR-ELI_LILLY_AND_COMPANY-EWC041141570

PATIENT
  Age: 2 Month
  Sex: Female

DRUGS (6)
  1. ZYPREXA [Suspect]
     Active Substance: OLANZAPINE
     Indication: SCHIZOPHRENIA
     Dosage: UNK, UNKNOWN
     Route: 064
     Dates: end: 20040525
  2. FERRUM                             /00023502/ [Concomitant]
     Dosage: UNK, UNKNOWN
     Route: 064
     Dates: end: 20040525
  3. TROPHICARD [Concomitant]
     Active Substance: MAGNESIUM ASPARTATE\POTASSIUM ASPARTATE
     Dosage: UNK, UNKNOWN
     Route: 064
     Dates: end: 20040525
  4. FILICINE [Concomitant]
     Dosage: UNK, UNKNOWN
     Route: 064
     Dates: end: 20040525
  5. CALCIUM [Concomitant]
     Active Substance: CALCIUM
     Dosage: UNK, UNKNOWN
     Route: 064
     Dates: end: 20040525
  6. LEGOFER [Concomitant]
     Active Substance: FERROUS SUCCINATE
     Dosage: UNK, UNKNOWN
     Route: 064
     Dates: end: 20040525

REACTIONS (2)
  - Foetal exposure during pregnancy [Recovering/Resolving]
  - Developmental hip dysplasia [Recovering/Resolving]

NARRATIVE: CASE EVENT DATE: 20040816
